FAERS Safety Report 15900549 (Version 1)
Quarter: 2019Q1

REPORT INFORMATION
  Report Type: Spontaneous
  Country: US (occurrence: US)
  Receive Date: 20190131
  Receipt Date: 20190131
  Transmission Date: 20190417
  Serious: Yes (Disabling)
  Sender: FDA-Public Use
  Company Number: None

PATIENT
  Age: 76 Year
  Sex: Male
  Weight: 90 kg

DRUGS (4)
  1. LATANOPROST. [Concomitant]
     Active Substance: LATANOPROST
  2. TIMOLOL. [Concomitant]
     Active Substance: TIMOLOL
  3. FINASTERIDE. [Concomitant]
     Active Substance: FINASTERIDE
  4. CIPRODEX [Suspect]
     Active Substance: CIPROFLOXACIN HYDROCHLORIDE\DEXAMETHASONE
     Indication: EAR INFECTION
     Dosage: ?          QUANTITY:4 DROP(S);?
     Route: 001
     Dates: start: 20171206, end: 20171219

REACTIONS (2)
  - Product complaint [None]
  - Deafness unilateral [None]

NARRATIVE: CASE EVENT DATE: 20180205
